FAERS Safety Report 9521756 (Version 1)
Quarter: 2013Q1

REPORT INFORMATION
  Report Type: Spontaneous
  Country: US (occurrence: None)
  Receive Date: 20130305
  Receipt Date: 20130305
  Transmission Date: 20140127
  Serious: Yes (Other)
  Sender: FDA-Public Use
  Company Number: 163-21880-12071065

PATIENT
  Age: 91 Year
  Sex: Female

DRUGS (14)
  1. REVLIMID (LENALIDOMIDE) (CAPSULES) [Suspect]
     Indication: LEUKAEMIA
     Dosage: 10 MG, 21 IN 21 D, PO
     Dates: start: 20120225
  2. ASA(ACETYLSALICYLIC ACID)(UNKNOWN) [Concomitant]
  3. CALCIUM +D(OS-CAL)(UNKNOWN) [Concomitant]
  4. CELEBREX(CELECOXIB)(UNKNOWN) [Concomitant]
  5. CENTRUM SILVER(CENTRUM SILVER)(UNKNOWN) [Concomitant]
  6. EYEVITE(EYEVITE)(UNKNOWN) [Concomitant]
  7. LASIX(FUROSEMIDE)(UNKNOWN) [Concomitant]
  8. NEXIUM(ESOMEPRAZOLE)(UNKNOWN) [Concomitant]
  9. OSTEO BI-FLEX(OSTEO BI-FLEX)(UNKNOWN) [Concomitant]
  10. STOOL SOFTENER(DOCUSATE SODIUM)(UNKNOWN) [Concomitant]
  11. SYNTHROID(LEVOTHYROXINE SODIUM)(UNKNOWN) [Concomitant]
  12. ZYRTEC(CETIRIZINE HYDROCHLORIDE)(UNKNOWN) [Concomitant]
  13. POTASSIUM(POTASSIUM)(UNKNOWN) [Concomitant]
  14. VITAMIN C(ASCORBIC ACID)(UNKNOWN) [Concomitant]

REACTIONS (1)
  - Haemoglobin decreased [None]
